FAERS Safety Report 5647305-4 (Version None)
Quarter: 2008Q1

REPORT INFORMATION
  Report Type: 
  Country: None (occurrence: None)
  Receive Date: 20080303
  Receipt Date: 20080222
  Transmission Date: 20080703
  Serious: Yes (Other)
  Sender: FDA-Public Use
  Company Number: DK-ABBOTT-08P-044-0439629-00

PATIENT
  Age: 52 Year
  Sex: Female

DRUGS (1)
  1. DEPAKINE RETARD [Suspect]
     Indication: GRAND MAL CONVULSION
     Route: 048

REACTIONS (1)
  - OSTEOPENIA [None]
